FAERS Safety Report 16011765 (Version 2)
Quarter: 2019Q1

REPORT INFORMATION
  Report Type: Report from Study
  Country: HN (occurrence: HN)
  Receive Date: 20190227
  Receipt Date: 20190313
  Transmission Date: 20190418
  Serious: Yes (Other)
  Sender: FDA-Public Use
  Company Number: PHHY2016HN076059

PATIENT
  Sex: Female

DRUGS (4)
  1. EXFORGE [Suspect]
     Active Substance: AMLODIPINE BESYLATE\VALSARTAN
     Dosage: (AMLODIPINE 5 MG,VALSARTAN 160 MG)
     Route: 065
     Dates: start: 20160517
  2. EXFORGE [Suspect]
     Active Substance: AMLODIPINE BESYLATE\VALSARTAN
     Indication: HYPERTENSION
     Dosage: 1 DF, QD (AMLODIPINE 5 MG,VALSARTAN 320 MG)
     Route: 065
  3. TRAYENTA DUO [Concomitant]
     Active Substance: LINAGLIPTIN\METFORMIN HYDROCHLORIDE
     Indication: DIABETES MELLITUS
     Dosage: (LINAGLIPTIN 2.5 MG, METFORMIN HYDROCHLORIDE 850 MG)
     Route: 065
  4. EXFORGE [Suspect]
     Active Substance: AMLODIPINE BESYLATE\VALSARTAN
     Dosage: 1 DF, QD  (AMLODIPINE 5 MG,VALSARTAN 320 MG)
     Route: 065

REACTIONS (15)
  - Thyroid cancer [Unknown]
  - Back pain [Not Recovered/Not Resolved]
  - Dysstasia [Unknown]
  - Fall [Unknown]
  - Weight decreased [Unknown]
  - Deafness unilateral [Unknown]
  - Gait inability [Unknown]
  - Spinal flattening [Unknown]
  - Mobility decreased [Unknown]
  - Metastasis [Unknown]
  - Spinal fracture [Unknown]
  - Hernia [Unknown]
  - Ill-defined disorder [Unknown]
  - Hypoacusis [Unknown]
  - Pain [Not Recovered/Not Resolved]
